FAERS Safety Report 25908154 (Version 1)
Quarter: 2025Q4

REPORT INFORMATION
  Report Type: Spontaneous
  Country: JP (occurrence: JP)
  Receive Date: 20251010
  Receipt Date: 20251010
  Transmission Date: 20260118
  Serious: Yes (Death)
  Sender: EISAI
  Company Number: JP-Eisai-202508550_DVG_P_1

PATIENT
  Sex: Female

DRUGS (1)
  1. DAYVIGO [Suspect]
     Active Substance: LEMBOREXANT
     Indication: Insomnia
     Route: 048

REACTIONS (1)
  - Sudden death [Fatal]
